FAERS Safety Report 7401934-6 (Version None)
Quarter: 2011Q2

REPORT INFORMATION
  Report Type: 
  Country: None (occurrence: None)
  Receive Date: 20110408
  Receipt Date: 20110329
  Transmission Date: 20111010
  Serious: Yes (Other)
  Sender: FDA-Public Use
  Company Number: US-JNJFOC-20110306545

PATIENT
  Sex: Male

DRUGS (3)
  1. STELARA [Suspect]
     Indication: ILL-DEFINED DISORDER
     Route: 058
  2. ISONIAZID [Concomitant]
  3. ANTIRETROVIRALS [Concomitant]

REACTIONS (1)
  - HIV INFECTION [None]
